FAERS Safety Report 5196492-3 (Version None)
Quarter: 2006Q4

REPORT INFORMATION
  Report Type: 
  Country: None (occurrence: None)
  Receive Date: 20061227
  Receipt Date: 20061219
  Transmission Date: 20070319
  Serious: Yes (Life-Threatening)
  Sender: FDA-Public Use
  Company Number: 2006JP005326

PATIENT
  Age: 82 Year
  Sex: Female
  Weight: 55 kg

DRUGS (6)
  1. VESICARE [Suspect]
     Indication: HYPERTONIC BLADDER
     Dosage: 5 MG, UID/QD
     Dates: start: 20061102, end: 20061102
  2. SEROCRAL (IFENPRDIL TARTRATE) [Concomitant]
  3. NORVASC [Concomitant]
  4. GASMOTIN (MOSAPRIDE CITRATE) [Concomitant]
  5. DOXAZOSIN MESYLATE [Concomitant]
  6. DIOVAN [Concomitant]

REACTIONS (5)
  - ANGINA PECTORIS [None]
  - CARDIAC PROCEDURE COMPLICATION [None]
  - CORONARY ARTERY DISEASE [None]
  - CORONARY ARTERY STENOSIS [None]
  - PALPITATIONS [None]
